FAERS Safety Report 4662160-7 (Version None)
Quarter: 2005Q2

REPORT INFORMATION
  Report Type: 
  Country: None (occurrence: None)
  Receive Date: 20050516
  Receipt Date: 20050511
  Transmission Date: 20051028
  Serious: Yes (Life-Threatening, Hospitalization)
  Sender: FDA-Public Use
  Company Number: PHHO2005FR07591

PATIENT
  Age: 20 Year
  Sex: Male

DRUGS (3)
  1. NEORAL [Suspect]
     Dosage: UNK, UNK
     Dates: start: 20050309
  2. METHOTREXATE [Concomitant]
  3. AMBISOME [Concomitant]
     Dates: start: 20050310

REACTIONS (8)
  - AGITATION [None]
  - BRONCHOPULMONARY ASPERGILLOSIS [None]
  - CONVULSION [None]
  - HALLUCINATION [None]
  - PYREXIA [None]
  - SEPSIS [None]
  - SHOCK HAEMORRHAGIC [None]
  - THROMBOTIC MICROANGIOPATHY [None]
